FAERS Safety Report 18654925 (Version 1)
Quarter: 2020Q4

REPORT INFORMATION
  Report Type: Spontaneous
  Country: FI (occurrence: FI)
  Receive Date: 20201223
  Receipt Date: 20201223
  Transmission Date: 20210114
  Serious: Yes (Disabling)
  Sender: FDA-Public Use
  Company Number: FI-NOVOPROD-774477

PATIENT
  Age: 17 Year
  Sex: Female

DRUGS (3)
  1. DIENORETTE [Concomitant]
     Indication: CONTRACEPTION
  2. DIENORETTE [Concomitant]
     Indication: DYSMENORRHOEA
     Dosage: 1 DF, QD
     Route: 048
     Dates: start: 202005
  3. FIASP [Suspect]
     Active Substance: INSULIN ASPART
     Indication: TYPE 1 DIABETES MELLITUS
     Dosage: 80 IU, QD
     Route: 065
     Dates: start: 201812, end: 202010

REACTIONS (2)
  - Fat necrosis [Recovered/Resolved with Sequelae]
  - Infusion site atrophy [Recovered/Resolved with Sequelae]

NARRATIVE: CASE EVENT DATE: 202001
